FAERS Safety Report 14755530 (Version 2)
Quarter: 2019Q2

REPORT INFORMATION
  Report Type: Spontaneous
  Country: PT (occurrence: PT)
  Receive Date: 20180413
  Receipt Date: 20190524
  Transmission Date: 20190711
  Serious: Yes (Other)
  Sender: FDA-Public Use
  Company Number: PT-BAUSCH-BL-2018-009728

PATIENT

DRUGS (2)
  1. FLUOCINOLONE ACETONIDE. [Suspect]
     Active Substance: FLUOCINOLONE ACETONIDE
     Indication: MACULAR OEDEMA
  2. FLUOCINOLONE ACETONIDE. [Suspect]
     Active Substance: FLUOCINOLONE ACETONIDE
     Indication: RETINAL VEIN OCCLUSION
     Dosage: 0.25 MICROGRAM, ONCE DAILY- UNKNOWN EYE, INSERT
     Route: 047

REACTIONS (3)
  - Intraocular pressure increased [Unknown]
  - Macular fibrosis [Unknown]
  - Off label use [Unknown]
